FAERS Safety Report 17942219 (Version 1)
Quarter: 2020Q2

REPORT INFORMATION
  Report Type: Spontaneous
  Country: TR (occurrence: TR)
  Receive Date: 20200624
  Receipt Date: 20200624
  Transmission Date: 20200714
  Serious: Yes (Death, Other)
  Sender: FDA-Public Use
  Company Number: TR-SEATTLE GENETICS-2020SGN02756

PATIENT
  Age: 58 Year
  Sex: Male

DRUGS (1)
  1. ADCETRIS [Suspect]
     Active Substance: BRENTUXIMAB VEDOTIN
     Route: 065

REACTIONS (7)
  - Pyrexia [Unknown]
  - Death [Fatal]
  - Pneumonia [Unknown]
  - Neutropenia [Unknown]
  - Condition aggravated [Unknown]
  - Pleural effusion [Unknown]
  - Cutaneous T-cell lymphoma [Unknown]
